FAERS Safety Report 7627409-7 (Version None)
Quarter: 2011Q3

REPORT INFORMATION
  Report Type: 
  Country: None (occurrence: None)
  Receive Date: 20110721
  Receipt Date: 20110718
  Transmission Date: 20111222
  Serious: No
  Sender: FDA-Public Use
  Company Number: US-PFIZER INC-2011163045

PATIENT
  Age: 58 Year
  Sex: Male
  Weight: 72.56 kg

DRUGS (1)
  1. IBUPROFEN (ADVIL) [Suspect]
     Dosage: 400 MG, DAILY
     Dates: start: 20110714, end: 20110718

REACTIONS (1)
  - RASH [None]
